FAERS Safety Report 6735269-1 (Version None)
Quarter: 2010Q2

REPORT INFORMATION
  Report Type: 
  Country: None (occurrence: None)
  Receive Date: 20100514
  Receipt Date: 20090424
  Transmission Date: 20101027
  Serious: Yes (Hospitalization)
  Sender: FDA-Public Use
  Company Number: WAES 0905USA00773

PATIENT
  Age: 56 Year
  Sex: Female

DRUGS (3)
  1. HYDRODIURIL [Suspect]
     Dosage: PO
  2. PLENDIL UNK [Suspect]
  3. DIOVAN [Suspect]

REACTIONS (2)
  - BLOOD PRESSURE ORTHOSTATIC [None]
  - HYPONATRAEMIA [None]
